FAERS Safety Report 9704322 (Version 1)
Quarter: 2013Q4

REPORT INFORMATION
  Report Type: Spontaneous
  Country: US (occurrence: None)
  Receive Date: 20131121
  Receipt Date: 20131121
  Transmission Date: 20140711
  Serious: Yes (Hospitalization)
  Sender: FDA-Public Use
  Company Number: None

PATIENT
  Age: 38 Year
  Sex: Male

DRUGS (6)
  1. VANCOMYCIN [Suspect]
     Indication: ABSCESS
     Dates: start: 20110913, end: 20110926
  2. KALETRA [Concomitant]
  3. ADVAIR [Concomitant]
  4. ALBUTEROL [Concomitant]
  5. OXYCODONE [Concomitant]
  6. COMBIVIR [Concomitant]

REACTIONS (2)
  - Rash [None]
  - Pruritus [None]
